FAERS Safety Report 6783068-7 (Version None)
Quarter: 2010Q2

REPORT INFORMATION
  Report Type: 
  Country: None (occurrence: None)
  Receive Date: 20100622
  Receipt Date: 20100611
  Transmission Date: 20101027
  Serious: Yes (Hospitalization)
  Sender: FDA-Public Use
  Company Number: CA-JNJFOC-20100604832

PATIENT
  Sex: Female
  Weight: 65.6 kg

DRUGS (3)
  1. REMICADE [Suspect]
     Indication: COLITIS ULCERATIVE
     Route: 042
     Dates: start: 20100531
  2. IMURAN [Concomitant]
  3. ASACOL [Concomitant]

REACTIONS (9)
  - BLOOD PRESSURE INCREASED [None]
  - CHILLS [None]
  - JOINT LOCK [None]
  - MUSCLE TIGHTNESS [None]
  - PYREXIA [None]
  - RASH [None]
  - RASH GENERALISED [None]
  - THROAT TIGHTNESS [None]
  - URTICARIA [None]
